FAERS Safety Report 6427918-2 (Version None)
Quarter: 2009Q4

REPORT INFORMATION
  Report Type: 
  Country: None (occurrence: None)
  Receive Date: 20091105
  Receipt Date: 20091027
  Transmission Date: 20100525
  Serious: Yes (Hospitalization)
  Sender: FDA-Public Use
  Company Number: US-JNJFOC-20091008950

PATIENT
  Sex: Male
  Weight: 91.63 kg

DRUGS (8)
  1. FENTANYL TRANSDERMAL SYSTEM [Suspect]
     Route: 062
  2. FENTANYL TRANSDERMAL SYSTEM [Suspect]
     Indication: CANCER PAIN
     Dosage: NDC#: 081-71112-55  NDC#: 0781-7113-55
     Route: 062
  3. METOPROLOL [Concomitant]
     Indication: TREMOR
     Route: 048
  4. QUALAQUIN [Concomitant]
     Indication: MUSCLE SPASMS
     Route: 048
  5. FUROSEMIDE [Concomitant]
     Indication: DIURETIC THERAPY
     Route: 048
  6. HYDROCODONE [Concomitant]
     Indication: BREAKTHROUGH PAIN
     Dosage: DOSE: 75/500
     Route: 048
  7. DOCUSATE [Concomitant]
     Indication: ABNORMAL FAECES
     Route: 048
  8. ORAL IRON SUPPLEMENT [Concomitant]
     Indication: ANAEMIA
     Route: 048

REACTIONS (3)
  - ABASIA [None]
  - DYSURIA [None]
  - FLUID RETENTION [None]
